FAERS Safety Report 9661706 (Version 1)
Quarter: 2013Q4

REPORT INFORMATION
  Report Type: Spontaneous
  Country: US (occurrence: US)
  Receive Date: 20131031
  Receipt Date: 20131031
  Transmission Date: 20140711
  Serious: No
  Sender: FDA-Public Use
  Company Number: US-PURDUE-USA-2010-0061656

PATIENT
  Age: 38 Year
  Sex: Male

DRUGS (2)
  1. OXYCONTIN (NDA 22-272) [Suspect]
     Indication: HEADACHE
     Dosage: 80 MG, 2-3 TABLETS DAILY
     Route: 048
     Dates: start: 20100815
  2. OXYCONTIN (NDA 22-272) [Suspect]
     Indication: BACK PAIN

REACTIONS (3)
  - Headache [Unknown]
  - Vomiting [Unknown]
  - Nausea [Unknown]
